FAERS Safety Report 8599494-X (Version None)
Quarter: 2012Q3

REPORT INFORMATION
  Report Type: 
  Country: None (occurrence: None)
  Receive Date: 20120816
  Receipt Date: 20120522
  Transmission Date: 20120928
  Serious: No
  Sender: FDA-Public Use
  Company Number: US-ALLERGAN-1207196US

PATIENT
  Age: 72 Year
  Sex: Female

DRUGS (3)
  1. LOTRAMAX [Concomitant]
     Indication: OCULAR HYPERAEMIA
     Dosage: UNK
     Route: 047
  2. LASTACAFT [Suspect]
     Indication: LACRIMATION INCREASED
     Dosage: 2 GTT, UNK
     Route: 047
     Dates: start: 20120514
  3. LOTRAMAX [Concomitant]
     Indication: EYE IRRITATION

REACTIONS (1)
  - DRUG INEFFECTIVE [None]
